FAERS Safety Report 15325823 (Version 1)
Quarter: 2018Q3

REPORT INFORMATION
  Report Type: Spontaneous
  Country: US (occurrence: US)
  Receive Date: 20180823
  Receipt Date: 20180823
  Transmission Date: 20181010
  Serious: Yes (Hospitalization)
  Sender: FDA-Public Use
  Company Number: None

PATIENT
  Age: 21 Year
  Sex: Male

DRUGS (11)
  1. MVW COMPLETE [Concomitant]
  2. RANITIDINE. [Concomitant]
     Active Substance: RANITIDINE
  3. VITAMIN D [Concomitant]
     Active Substance: CHOLECALCIFEROL
  4. ALBUTEROL. [Suspect]
     Active Substance: ALBUTEROL
     Indication: CYSTIC FIBROSIS
     Dosage: ?          OTHER ROUTE:VIA NEBULIZER?
     Dates: start: 20180419
  5. ORKAMBI [Concomitant]
     Active Substance: IVACAFTOR\LUMACAFTOR
  6. SODIUM CHLOR [Concomitant]
     Active Substance: SODIUM CHLORIDE
  7. VITAMIN D3 [Concomitant]
     Active Substance: CHOLECALCIFEROL
  8. PULMOZYME [Suspect]
     Active Substance: DORNASE ALFA
     Indication: CYSTIC FIBROSIS
     Dosage: ?          OTHER ROUTE:VIA NEBULIZER?
     Dates: start: 20180130
  9. CREON [Concomitant]
     Active Substance: PANCRELIPASE AMYLASE\PANCRELIPASE LIPASE\PANCRELIPASE PROTEASE
  10. LANSOPRAZOLE. [Concomitant]
     Active Substance: LANSOPRAZOLE
  11. CAYSTON [Concomitant]
     Active Substance: AZTREONAM

REACTIONS (1)
  - Bacterial infection [None]

NARRATIVE: CASE EVENT DATE: 20180709
